FAERS Safety Report 6622301-9 (Version None)
Quarter: 2010Q1

REPORT INFORMATION
  Report Type: 
  Country: None (occurrence: None)
  Receive Date: 20100305
  Receipt Date: 20100218
  Transmission Date: 20100710
  Serious: Yes (Death)
  Sender: FDA-Public Use
  Company Number: KV201000008

PATIENT
  Age: 90 Year
  Sex: Female
  Weight: 56.7 kg

DRUGS (6)
  1. MORPHINE SULFATE [Suspect]
     Indication: PAIN
     Dosage: 30 MG, Q12H, ORAL
     Route: 048
     Dates: start: 20080101, end: 20080101
  2. REGLAN [Concomitant]
  3. ACTONEL [Concomitant]
  4. PROTONIX [Concomitant]
  5. RESTORIL [Concomitant]
  6. DIAZEPAM [Concomitant]

REACTIONS (5)
  - ARTERIOSCLEROSIS CORONARY ARTERY [None]
  - CARDIO-RESPIRATORY ARREST [None]
  - FAILURE TO THRIVE [None]
  - FALL [None]
  - PRODUCT QUALITY ISSUE [None]
